FAERS Safety Report 18993237 (Version 5)
Quarter: 2021Q3

REPORT INFORMATION
  Report Type: Report from Study
  Country: US (occurrence: US)
  Receive Date: 20210310
  Receipt Date: 20210706
  Transmission Date: 20211014
  Serious: No
  Sender: FDA-Public Use
  Company Number: NVSC2021US055599

PATIENT
  Age: 64 Year
  Sex: Female

DRUGS (3)
  1. ENTRESTO [Suspect]
     Active Substance: SACUBITRIL\VALSARTAN
     Indication: EJECTION FRACTION DECREASED
     Dosage: 100 MG, BID (49/51 MG)
     Route: 048
     Dates: start: 20210303
  2. ENTRESTO [Suspect]
     Active Substance: SACUBITRIL\VALSARTAN
     Dosage: 1 DF, BID (97/103MG)
     Route: 048
     Dates: start: 20210316
  3. METOPROLOL. [Suspect]
     Active Substance: METOPROLOL
     Indication: PRODUCT USED FOR UNKNOWN INDICATION
     Dosage: 50 MG
     Route: 065

REACTIONS (6)
  - Cough [Recovering/Resolving]
  - Dyspnoea [Recovering/Resolving]
  - Heart rate decreased [Unknown]
  - Dizziness [Unknown]
  - Fatigue [Unknown]
  - Product use in unapproved indication [Unknown]

NARRATIVE: CASE EVENT DATE: 20210304
